FAERS Safety Report 9819129 (Version 2)
Quarter: 2014Q1

REPORT INFORMATION
  Report Type: Spontaneous
  Country: DE (occurrence: DE)
  Receive Date: 20140115
  Receipt Date: 20140115
  Transmission Date: 20141002
  Serious: Yes (Other)
  Sender: FDA-Public Use
  Company Number: DE-BRISTOL-MYERS SQUIBB COMPANY-19923754

PATIENT
  Age: 73 Year
  Sex: Male
  Weight: 90 kg

DRUGS (6)
  1. ELIQUIS [Suspect]
     Dosage: TABS
     Dates: start: 20130917
  2. ALLOPURINOL [Concomitant]
  3. ATORVASTATIN [Concomitant]
  4. CANDESARTAN [Concomitant]
     Dosage: 1DF: 16/12.5MG
  5. INDAPAMIDE [Concomitant]
  6. PROCORALAN [Concomitant]

REACTIONS (1)
  - Spinal column stenosis [Unknown]
